FAERS Safety Report 11349444 (Version 1)
Quarter: 2015Q3

REPORT INFORMATION
  Report Type: Report from Study
  Country: US (occurrence: US)
  Receive Date: 20150807
  Receipt Date: 20150807
  Transmission Date: 20151125
  Serious: No
  Sender: FDA-Public Use
  Company Number: PHEH2015US004444

PATIENT
  Sex: Female

DRUGS (1)
  1. GILENYA [Suspect]
     Active Substance: FINGOLIMOD HYDROCHLORIDE
     Indication: MULTIPLE SCLEROSIS
     Dosage: 0.5 MG, QD
     Route: 048
     Dates: start: 20150204

REACTIONS (5)
  - Nasal congestion [Unknown]
  - Root canal infection [Unknown]
  - Ocular hyperaemia [Recovering/Resolving]
  - Cough [Unknown]
  - Asthenopia [Recovering/Resolving]
